FAERS Safety Report 10709637 (Version 1)
Quarter: 2015Q1

REPORT INFORMATION
  Report Type: Report from Study
  Country: AT (occurrence: AT)
  Receive Date: 20150114
  Receipt Date: 20150114
  Transmission Date: 20150721
  Serious: Yes (Hospitalization)
  Sender: FDA-Public Use
  Company Number: AT-INCYTE CORPORATION-2014IN004013

PATIENT
  Age: 84 Year
  Sex: Female
  Weight: 45.6 kg

DRUGS (9)
  1. THROMBO ASS [Concomitant]
     Active Substance: ASPIRIN
     Indication: PORTAL VEIN THROMBOSIS
     Dosage: 50 MG, QD
     Route: 065
     Dates: start: 20120210
  2. CONCOR [Concomitant]
     Active Substance: BISOPROLOL FUMARATE
     Indication: CORONARY ARTERY DISEASE
     Dosage: 5 MG, QD
     Route: 065
     Dates: start: 20120119
  3. NOVALGIN [Concomitant]
     Active Substance: METAMIZOLE SODIUM
     Indication: PAIN
     Dosage: 40 GTT, QD
     Route: 065
     Dates: start: 201408
  4. PANTOPRAZOLE [Concomitant]
     Active Substance: PANTOPRAZOLE SODIUM
     Indication: PROPHYLAXIS
     Dosage: 20 MG, QD
     Route: 065
     Dates: start: 20120210
  5. ACEMIN [Concomitant]
     Active Substance: LISINOPRIL
     Indication: HYPERTENSION
     Dosage: 10 MG, QD
     Route: 065
     Dates: start: 20141211
  6. INC424 [Suspect]
     Active Substance: RUXOLITINIB
     Dosage: 15 MG, BID
     Route: 048
     Dates: start: 20141217, end: 20141224
  7. INC424 [Suspect]
     Active Substance: RUXOLITINIB
     Indication: POLYCYTHAEMIA VERA
     Dosage: 10 MG, BID
     Route: 048
     Dates: start: 20141127
  8. RESONIUM [Concomitant]
     Active Substance: SODIUM POLYSTYRENE SULFONATE
     Indication: PROPHYLAXIS
     Dosage: 16 MG, BID
     Route: 065
     Dates: start: 20140519
  9. LASIX [Concomitant]
     Active Substance: FUROSEMIDE
     Indication: OEDEMA
     Dosage: 30 MG, QD
     Route: 065
     Dates: start: 201408

REACTIONS (2)
  - Arthralgia [Recovered/Resolved]
  - Pelvic haemorrhage [Recovering/Resolving]

NARRATIVE: CASE EVENT DATE: 20141216
